FAERS Safety Report 18416563 (Version 1)
Quarter: 2020Q4

REPORT INFORMATION
  Report Type: Spontaneous
  Country: US (occurrence: US)
  Receive Date: 20201022
  Receipt Date: 20201022
  Transmission Date: 20210114
  Serious: No
  Sender: FDA-Public Use
  Company Number: US-ELI_LILLY_AND_COMPANY-US202006009175

PATIENT

DRUGS (2)
  1. EMGALITY [Suspect]
     Active Substance: GALCANEZUMAB-GNLM
     Indication: TRIGEMINAL NEURALGIA
  2. EMGALITY [Suspect]
     Active Substance: GALCANEZUMAB-GNLM
     Indication: HEADACHE
     Dosage: UNK UNK, UNKNOWN
     Route: 065
     Dates: end: 202001

REACTIONS (3)
  - Injection site reaction [Recovered/Resolved]
  - Injection site pruritus [Recovered/Resolved]
  - Off label use [Unknown]
